FAERS Safety Report 20909104 (Version 1)
Quarter: 2022Q2

REPORT INFORMATION
  Report Type: Spontaneous
  Country: US (occurrence: US)
  Receive Date: 20220603
  Receipt Date: 20220603
  Transmission Date: 20220721
  Serious: No
  Sender: FDA-Public Use
  Company Number: US-OTSUKA-2021_034881

PATIENT

DRUGS (1)
  1. JYNARQUE [Suspect]
     Active Substance: TOLVAPTAN
     Indication: Product used for unknown indication
     Dosage: UNK
     Route: 065

REACTIONS (5)
  - Abdominal discomfort [Unknown]
  - Dry mouth [Unknown]
  - Palpitations [Unknown]
  - Pollakiuria [Unknown]
  - Thirst [Unknown]
